FAERS Safety Report 9213799 (Version 1)
Quarter: 2013Q2

REPORT INFORMATION
  Report Type: Report from Study
  Country: JP (occurrence: JP)
  Receive Date: 20130405
  Receipt Date: 20130405
  Transmission Date: 20140414
  Serious: Yes (Other)
  Sender: FDA-Public Use
  Company Number: JP-ASTELLAS-2013JP004546

PATIENT
  Age: 17 Year
  Sex: Male

DRUGS (4)
  1. TACROLIMUS [Suspect]
     Indication: LUPUS NEPHRITIS
     Dosage: 3 MG, UID/QD
     Route: 065
  2. METHYLPREDNISOLONE [Concomitant]
     Indication: LUPUS NEPHRITIS
     Dosage: 20 MG/KG, UNKNOWN/D
     Route: 042
  3. MIZORIBINE [Concomitant]
     Indication: LUPUS NEPHRITIS
     Dosage: 150 MG, UID/QD
     Route: 065
  4. PREDNISOLONE [Concomitant]
     Indication: LUPUS NEPHRITIS
     Dosage: 20 MG, UNKNOWN/D
     Route: 065

REACTIONS (2)
  - Drug ineffective [Unknown]
  - Lupus nephritis [Unknown]
